FAERS Safety Report 18636839 (Version 1)
Quarter: 2020Q4

REPORT INFORMATION
  Report Type: Report from Study
  Country: MX (occurrence: MX)
  Receive Date: 20201218
  Receipt Date: 20201218
  Transmission Date: 20210114
  Serious: Yes (Other)
  Sender: FDA-Public Use
  Company Number: MX-UCBSA-2020051951

PATIENT
  Sex: Female

DRUGS (2)
  1. ROTIGOTINE [Suspect]
     Active Substance: ROTIGOTINE
     Indication: PARKINSON^S DISEASE
     Dosage: UNK
     Route: 062
     Dates: start: 202010, end: 2020
  2. ROTIGOTINE [Suspect]
     Active Substance: ROTIGOTINE
     Dosage: CHANGE IN DOSE (UNSPECIFIED) (SINGLE PURCHASE OF 4MG)
     Route: 062
     Dates: start: 2020, end: 202011

REACTIONS (4)
  - Drug ineffective [Unknown]
  - Movement disorder [Recovering/Resolving]
  - Tongue disorder [Recovering/Resolving]
  - Muscle spasms [Recovering/Resolving]

NARRATIVE: CASE EVENT DATE: 2020
